FAERS Safety Report 7093082-2 (Version None)
Quarter: 2010Q4

REPORT INFORMATION
  Report Type: 
  Country: None (occurrence: None)
  Receive Date: 20101105
  Receipt Date: 20101105
  Transmission Date: 20110411
  Serious: No
  Sender: FDA-Public Use
  Company Number: None

PATIENT
  Age: 73 Year
  Sex: Female

DRUGS (2)
  1. NITROFURANTOIN [Suspect]
     Indication: LIVER INJURY
     Dosage: 100MG Q O D
     Dates: start: 20080301, end: 20081016
  2. NITROFURANTOIN [Suspect]
     Dosage: 50 MG Q D
     Dates: start: 20060606, end: 20070321

REACTIONS (6)
  - ALANINE AMINOTRANSFERASE INCREASED [None]
  - ASPARTATE AMINOTRANSFERASE INCREASED [None]
  - CHOLECYSTECTOMY [None]
  - CHOLELITHIASIS [None]
  - DECREASED APPETITE [None]
  - FATIGUE [None]
